FAERS Safety Report 21398670 (Version 1)
Quarter: 2022Q3

REPORT INFORMATION
  Report Type: Spontaneous
  Country: US (occurrence: US)
  Receive Date: 20220930
  Receipt Date: 20220930
  Transmission Date: 20221026
  Serious: No
  Sender: FDA-Public Use
  Company Number: US-PADAGIS-2022PAD00716

PATIENT

DRUGS (1)
  1. MOMETASONE FUROATE [Suspect]
     Active Substance: MOMETASONE FUROATE
     Indication: Ear disorder
     Dosage: 3 DF IN EACH EAR AT BED TIME
     Route: 001
     Dates: start: 20220918

REACTIONS (5)
  - Dizziness [Not Recovered/Not Resolved]
  - Ear discomfort [Not Recovered/Not Resolved]
  - Incorrect route of product administration [Unknown]
  - Product prescribing error [Unknown]
  - Product use in unapproved indication [Unknown]

NARRATIVE: CASE EVENT DATE: 20220919
